FAERS Safety Report 18251821 (Version 1)
Quarter: 2020Q3

REPORT INFORMATION
  Report Type: Spontaneous
  Country: US (occurrence: US)
  Receive Date: 20200506
  Receipt Date: 20200506
  Transmission Date: 20201103
  Serious: No
  Sender: FDA-Public Use
  Company Number: None

PATIENT
  Sex: Male

DRUGS (2)
  1. AZITHROMYCIN ANHYDROUS. [Suspect]
     Active Substance: AZITHROMYCIN ANHYDROUS
     Indication: COVID-19
     Dosage: ?          OTHER DOSE:500MG?250MG;?
     Route: 048
  2. HYDROXYCHLOROQUINE [Suspect]
     Active Substance: HYDROXYCHLOROQUINE
     Dosage: ?          OTHER DOSE:400MG?200DF;?
     Route: 048

REACTIONS (3)
  - Electrocardiogram QT prolonged [None]
  - Atrial fibrillation [None]
  - Off label use [None]

NARRATIVE: CASE EVENT DATE: 2020
